FAERS Safety Report 9042076 (Version 1)
Quarter: 2013Q1

REPORT INFORMATION
  Report Type: Spontaneous
  Country: BR (occurrence: BR)
  Receive Date: 20130129
  Receipt Date: 20130129
  Transmission Date: 20140127
  Serious: Yes (Life-Threatening, Other)
  Sender: FDA-Public Use
  Company Number: BR-ABBOTT-13P-020-1040937-00

PATIENT
  Age: 42 None
  Sex: Female
  Weight: 66 kg

DRUGS (2)
  1. HUMIRA [Suspect]
     Indication: PSORIATIC ARTHROPATHY
     Route: 058
     Dates: start: 201209, end: 201212
  2. PREDNISONE [Suspect]
     Indication: PAIN
     Route: 048
     Dates: start: 2011

REACTIONS (13)
  - Suicidal ideation [Unknown]
  - Candida infection [Recovering/Resolving]
  - Sinusitis [Recovered/Resolved]
  - Tonsillitis [Recovered/Resolved]
  - Arthralgia [Not Recovered/Not Resolved]
  - Pain in extremity [Not Recovered/Not Resolved]
  - Spinal pain [Not Recovered/Not Resolved]
  - Drug ineffective [Unknown]
  - Crying [Not Recovered/Not Resolved]
  - Dyspnoea [Recovered/Resolved]
  - Pain [Unknown]
  - Bedridden [Unknown]
  - Abasia [Unknown]
